FAERS Safety Report 23214177 (Version 1)
Quarter: 2023Q4

REPORT INFORMATION
  Report Type: Spontaneous
  Country: US (occurrence: None)
  Receive Date: 20231121
  Receipt Date: 20231121
  Transmission Date: 20240110
  Serious: No
  Sender: FDA-Public Use
  Company Number: None

PATIENT
  Age: 70 Year
  Sex: Male
  Weight: 90 kg

DRUGS (6)
  1. ROSUVASTATIN [Suspect]
     Active Substance: ROSUVASTATIN
     Indication: Blood calcium abnormal
     Dosage: OTHER QUANTITY : 1 TABLET(S);?FREQUENCY : DAILY;?
     Route: 048
     Dates: start: 20231006, end: 20231117
  2. ROSUVASTATIN [Suspect]
     Active Substance: ROSUVASTATIN
     Indication: Cardiac disorder
  3. HYDROCHLOROTIZIDE [Concomitant]
  4. LISENISPRIL [Concomitant]
  5. AMPOMIODINE [Concomitant]
  6. ASPIRIN [Concomitant]
     Active Substance: ASPIRIN

REACTIONS (7)
  - Muscle fatigue [None]
  - Nausea [None]
  - Abdominal pain upper [None]
  - Back pain [None]
  - Exercise tolerance decreased [None]
  - Balance disorder [None]
  - Tremor [None]

NARRATIVE: CASE EVENT DATE: 20231116
